FAERS Safety Report 10082373 (Version 2)
Quarter: 2014Q2

REPORT INFORMATION
  Report Type: Spontaneous
  Country: US (occurrence: US)
  Receive Date: 20140416
  Receipt Date: 20140416
  Transmission Date: 20141212
  Serious: No
  Sender: FDA-Public Use
  Company Number: US-ORAPHARMA-QUINORA-2013-082

PATIENT
  Sex: 0

DRUGS (1)
  1. ARESTIN [Suspect]
     Indication: GINGIVITIS
     Dosage: 1 DF, ONE TIME DOSE
     Route: 050
     Dates: start: 20130408, end: 20130408

REACTIONS (2)
  - Exposure during breast feeding [Unknown]
  - Off label use [Unknown]
